FAERS Safety Report 17199250 (Version 1)
Quarter: 2019Q4

REPORT INFORMATION
  Report Type: Spontaneous
  Country: CN (occurrence: CN)
  Receive Date: 20191225
  Receipt Date: 20191225
  Transmission Date: 20200122
  Serious: Yes (Hospitalization)
  Sender: FDA-Public Use
  Company Number: CN-BAXTER-2019BAX025931

PATIENT
  Age: 37 Year
  Sex: Female
  Weight: 34 kg

DRUGS (16)
  1. ENDOXAN [Suspect]
     Active Substance: CYCLOPHOSPHAMIDE
     Indication: BONE CANCER
     Dosage: D1: ENDOXAN 1.4G + NS 70 ML + GS 250 ML
     Route: 041
     Dates: start: 20191119, end: 20191119
  2. 0.9% SODIUM CHLORIDE INJECTION [Suspect]
     Active Substance: SODIUM CHLORIDE
     Dosage: DOSE RE-INTRODUCED; ENDOXAN + NS + GS
     Route: 041
  3. ENDOXAN [Suspect]
     Active Substance: CYCLOPHOSPHAMIDE
     Dosage: DOSE RE-INTRODUCED; ENDOXAN + NS + GS
     Route: 041
  4. ADRIAMYCIN [Suspect]
     Active Substance: DOXORUBICIN HYDROCHLORIDE
     Dosage: DOSE RE-INTRODUCED, LIPOSOMAL ADRIAMYCIN + GS
     Route: 041
  5. 0.9% SODIUM CHLORIDE INJECTION [Suspect]
     Active Substance: SODIUM CHLORIDE
     Dosage: DOSE RE-INTRODUCED: VINDESINE SULFATE + NS
     Route: 041
  6. 5% GLUCOSE  INJECTION [Suspect]
     Active Substance: DEXTROSE
     Dosage: DOSE RE-INTRODUCED: LIPOSOMAL ADRIAMYCIN + GS
     Route: 041
  7. 5% GLUCOSE  INJECTION [Suspect]
     Active Substance: DEXTROSE
     Dosage: D1: ADRIAMYCIN 20 MG + GS 250ML
     Route: 041
     Dates: start: 20191119, end: 20191119
  8. VINDESINE SULFATE [Suspect]
     Active Substance: VINDESINE SULFATE
     Indication: BONE CANCER
     Dosage: D1: VINDESINE SULFATE 3.6 MG + NS 500 ML
     Route: 041
     Dates: start: 20191119, end: 20191119
  9. VINDESINE SULFATE [Suspect]
     Active Substance: VINDESINE SULFATE
     Dosage: DOSE RE-INTRODUCED: VINDESINE SULFATE + NS
     Route: 041
  10. 5% GLUCOSE  INJECTION [Suspect]
     Active Substance: DEXTROSE
     Dosage: DOSE RE-INTRODUCED: ENDOXAN + NS + GS
     Route: 041
  11. 5% GLUCOSE  INJECTION [Suspect]
     Active Substance: DEXTROSE
     Dosage: D2: ADRIAMYCIN 50 MG + GS 250ML
     Route: 041
     Dates: start: 20191120, end: 20191120
  12. ADRIAMYCIN [Suspect]
     Active Substance: DOXORUBICIN HYDROCHLORIDE
     Indication: BONE CANCER
     Dosage: D1: ADRIAMYCIN 20 MG + GS 250 ML
     Route: 041
     Dates: start: 20191119, end: 20191119
  13. ADRIAMYCIN [Suspect]
     Active Substance: DOXORUBICIN HYDROCHLORIDE
     Dosage: DAY 2: ADRIAMYCIN 50 MG + GS 250 ML
     Route: 041
     Dates: start: 20191120, end: 20191120
  14. 0.9% SODIUM CHLORIDE INJECTION [Suspect]
     Active Substance: SODIUM CHLORIDE
     Indication: MEDICATION DILUTION
     Dosage: D1: ENDOXAN 1.4G + NS 70 ML + GS 250 ML
     Route: 041
     Dates: start: 20191119, end: 20191119
  15. 0.9% SODIUM CHLORIDE INJECTION [Suspect]
     Active Substance: SODIUM CHLORIDE
     Dosage: D1: VINDESINE SULFATE 3.6 MG + NS 500 ML
     Route: 041
     Dates: start: 20191119, end: 20191119
  16. 5% GLUCOSE  INJECTION [Suspect]
     Active Substance: DEXTROSE
     Indication: MEDICATION DILUTION
     Dosage: D1: ENDOXAN 1.4 G + NS 70ML + GS 250ML
     Route: 041
     Dates: start: 20191119, end: 20191119

REACTIONS (1)
  - Bone marrow failure [Recovering/Resolving]

NARRATIVE: CASE EVENT DATE: 20191128
